FAERS Safety Report 5185394-4 (Version None)
Quarter: 2006Q4

REPORT INFORMATION
  Report Type: 
  Country: None (occurrence: None)
  Receive Date: 20061220
  Receipt Date: 20060713
  Transmission Date: 20070319
  Serious: No
  Sender: FDA-Public Use
  Company Number: US-GLAXOSMITHKLINE-A0612130A

PATIENT
  Age: 50 Year
  Sex: Female

DRUGS (1)
  1. NICODERM CQ [Suspect]
     Dates: start: 20060712, end: 20060713

REACTIONS (2)
  - ABNORMAL DREAMS [None]
  - NICOTINE DEPENDENCE [None]
